FAERS Safety Report 24052008 (Version 1)
Quarter: 2024Q3

REPORT INFORMATION
  Report Type: Spontaneous
  Country: GB (occurrence: None)
  Receive Date: 20240704
  Receipt Date: 20240704
  Transmission Date: 20241017
  Serious: Yes (Hospitalization, Other)
  Sender: ASTRAZENECA
  Company Number: 2024A148514

PATIENT

DRUGS (1)
  1. TEZEPELUMAB [Suspect]
     Active Substance: TEZEPELUMAB
     Indication: Asthma
     Route: 058

REACTIONS (4)
  - Colitis ischaemic [Not Recovered/Not Resolved]
  - Myelodysplastic syndrome [Unknown]
  - Myalgia [Unknown]
  - Arthralgia [Unknown]
